FAERS Safety Report 4847064-9 (Version None)
Quarter: 2005Q4

REPORT INFORMATION
  Report Type: 
  Country: None (occurrence: None)
  Receive Date: 20051207
  Receipt Date: 20051128
  Transmission Date: 20060501
  Serious: Yes (Other)
  Sender: FDA-Public Use
  Company Number: US-JNJFOC-20051003251

PATIENT
  Sex: Male

DRUGS (5)
  1. REMICADE [Suspect]
     Route: 042
  2. REMICADE [Suspect]
     Route: 042
  3. CHOLESTEROL MEDICATION [Concomitant]
  4. B-12 [Concomitant]
  5. PURINETHOL [Concomitant]

REACTIONS (2)
  - PANCYTOPENIA [None]
  - SKIN CANCER [None]
